FAERS Safety Report 4612896-9 (Version None)
Quarter: 2005Q1

REPORT INFORMATION
  Report Type: 
  Country: None (occurrence: None)
  Receive Date: 20050318
  Receipt Date: 20050112
  Transmission Date: 20050727
  Serious: Yes (Life-Threatening, Hospitalization, Disabling)
  Sender: FDA-Public Use
  Company Number: ES-GLAXOSMITHKLINE-B0364857A

PATIENT
  Age: 54 Year
  Sex: Male

DRUGS (2)
  1. ZYNTABAC [Suspect]
     Indication: SMOKING CESSATION THERAPY
     Dosage: 150MG PER DAY
     Route: 048
     Dates: start: 20041102, end: 20041120
  2. NICOTINELL [Concomitant]
     Route: 065

REACTIONS (7)
  - CARDIAC DISORDER [None]
  - CARDIAC VALVE DISEASE [None]
  - HEMIPARESIS [None]
  - LUNG DISORDER [None]
  - NERVOUS SYSTEM DISORDER [None]
  - POST PROCEDURAL COMPLICATION [None]
  - PULMONARY OEDEMA [None]
